FAERS Safety Report 14264353 (Version 1)
Quarter: 2017Q4

REPORT INFORMATION
  Report Type: Spontaneous
  Country: US (occurrence: US)
  Receive Date: 20171208
  Receipt Date: 20171208
  Transmission Date: 20180321
  Serious: No
  Sender: FDA-Public Use
  Company Number: US-JAZZ-2017-US-011497

PATIENT
  Sex: Female

DRUGS (39)
  1. XYREM [Suspect]
     Active Substance: SODIUM OXYBATE
     Dosage: FIRST DOSE 4 G, QD
     Route: 048
     Dates: start: 201706
  2. TOPAMAX [Concomitant]
     Active Substance: TOPIRAMATE
  3. MIRALAX [Concomitant]
     Active Substance: POLYETHYLENE GLYCOL 3350
  4. NORCO [Concomitant]
     Active Substance: ACETAMINOPHEN\HYDROCODONE BITARTRATE
  5. PROVIGIL [Concomitant]
     Active Substance: MODAFINIL
  6. VENTOLIN HFA [Concomitant]
     Active Substance: ALBUTEROL SULFATE
  7. ZOFRAN [Concomitant]
     Active Substance: ONDANSETRON HYDROCHLORIDE
  8. XYREM [Suspect]
     Active Substance: SODIUM OXYBATE
     Indication: NARCOLEPSY
     Dosage: 2.25G, BID
     Route: 048
     Dates: start: 201603, end: 2016
  9. GABAPENTIN. [Concomitant]
     Active Substance: GABAPENTIN
  10. LINZESS [Concomitant]
     Active Substance: LINACLOTIDE
  11. SEROQUEL [Concomitant]
     Active Substance: QUETIAPINE FUMARATE
  12. VITAMIN D                          /00107901/ [Concomitant]
     Active Substance: ERGOCALCIFEROL
  13. ABILIFY [Concomitant]
     Active Substance: ARIPIPRAZOLE
  14. ADDERALL [Concomitant]
     Active Substance: AMPHETAMINE ASPARTATE\AMPHETAMINE SULFATE\DEXTROAMPHETAMINE SACCHARATE\DEXTROAMPHETAMINE SULFATE
  15. FLUCONAZOLE. [Concomitant]
     Active Substance: FLUCONAZOLE
  16. TRAMADOL HCL [Concomitant]
     Active Substance: TRAMADOL HYDROCHLORIDE
  17. XYREM [Suspect]
     Active Substance: SODIUM OXYBATE
     Dosage: 3.5 G, QD
     Route: 048
     Dates: start: 201706
  18. CEPHALEXIN                         /00145501/ [Concomitant]
     Active Substance: CEPHALEXIN
  19. SUDAFED PE CONGESTION [Concomitant]
     Active Substance: PHENYLEPHRINE HYDROCHLORIDE
  20. AMBIEN [Concomitant]
     Active Substance: ZOLPIDEM TARTRATE
  21. PILOCARPINE HCL [Concomitant]
     Active Substance: PILOCARPINE HYDROCHLORIDE
  22. SYSTANE BALANCE [Concomitant]
     Active Substance: PROPYLENE GLYCOL
  23. VALTREX [Concomitant]
     Active Substance: VALACYCLOVIR HYDROCHLORIDE
  24. SULFAMETHOXAZOLE [Concomitant]
     Active Substance: SULFAMETHOXAZOLE
  25. CLARITIN-D NOS [Concomitant]
     Active Substance: LORATADINE\PSEUDOEPHEDRINE SULFATE
  26. FLOMAX [Concomitant]
     Active Substance: TAMSULOSIN HYDROCHLORIDE
  27. BISMUTH CITRATE [Concomitant]
     Active Substance: BISMUTH CITRATE
  28. OXYBUTYNIN CHLORIDE. [Concomitant]
     Active Substance: OXYBUTYNIN CHLORIDE
  29. PROMETHAZINE [Concomitant]
     Active Substance: PROMETHAZINE\PROMETHAZINE HYDROCHLORIDE
  30. RANITIDINE. [Concomitant]
     Active Substance: RANITIDINE
  31. WELLBUTRIN [Concomitant]
     Active Substance: BUPROPION HYDROCHLORIDE
  32. XYREM [Suspect]
     Active Substance: SODIUM OXYBATE
     Indication: CATAPLEXY
     Dosage: DOSE ADJUSTMENTS
     Route: 048
     Dates: start: 2016, end: 201706
  33. XIFAXAN [Concomitant]
     Active Substance: RIFAXIMIN
  34. BOTOX COSMETIC [Concomitant]
     Active Substance: ONABOTULINUMTOXINA
  35. DIAZEPAM. [Concomitant]
     Active Substance: DIAZEPAM
  36. EXCEDRIN TENSION HEADACHE [Concomitant]
     Active Substance: ACETAMINOPHEN\CAFFEINE
  37. MELOXICAM. [Concomitant]
     Active Substance: MELOXICAM
  38. RESTASIS [Concomitant]
     Active Substance: CYCLOSPORINE
  39. TREXIMET [Concomitant]
     Active Substance: NAPROXEN SODIUM\SUMATRIPTAN SUCCINATE

REACTIONS (2)
  - Upper respiratory tract infection [Recovered/Resolved]
  - Dry mouth [Not Recovered/Not Resolved]
